FAERS Safety Report 11121100 (Version 3)
Quarter: 2015Q2

REPORT INFORMATION
  Report Type: Spontaneous
  Country: US (occurrence: US)
  Receive Date: 20150519
  Receipt Date: 20150610
  Transmission Date: 20150821
  Serious: No
  Sender: FDA-Public Use
  Company Number: US-BAYER-2015-220650

PATIENT
  Age: 23 Year
  Sex: Female

DRUGS (1)
  1. MIRENA [Suspect]
     Active Substance: LEVONORGESTREL
     Indication: CONTRACEPTION
     Dosage: 20 MCG/24HR, CONT
     Route: 015
     Dates: start: 201411, end: 20150402

REACTIONS (3)
  - Pelvic pain [Not Recovered/Not Resolved]
  - Amenorrhoea [None]
  - Back pain [Recovered/Resolved]

NARRATIVE: CASE EVENT DATE: 2015
